FAERS Safety Report 19482989 (Version 2)
Quarter: 2021Q4

REPORT INFORMATION
  Report Type: Spontaneous
  Country: US (occurrence: US)
  Receive Date: 20210701
  Receipt Date: 20211022
  Transmission Date: 20220303
  Serious: Yes (Hospitalization, Other)
  Sender: FDA-Public Use
  Company Number: US-TAKEDA-2021TUS039044

PATIENT
  Age: 61 Year
  Sex: Female
  Weight: 71.7 kg

DRUGS (18)
  1. GAMMAGARD [Suspect]
     Active Substance: HUMAN IMMUNOGLOBULIN G
     Indication: Product used for unknown indication
     Dosage: UNK
     Route: 065
     Dates: start: 2021, end: 2021
  2. FIRDAPSE [Suspect]
     Active Substance: AMIFAMPRIDINE PHOSPHATE
     Indication: Myasthenic syndrome
     Dosage: 20 MILLIGRAM, TID
     Route: 048
     Dates: start: 20200717
  3. IRON [Concomitant]
     Active Substance: IRON
  4. NEXIUM [Concomitant]
     Active Substance: ESOMEPRAZOLE MAGNESIUM
  5. DYMISTA [Concomitant]
     Active Substance: AZELASTINE HYDROCHLORIDE\FLUTICASONE PROPIONATE
  6. GUAIFENESIN [Concomitant]
     Active Substance: GUAIFENESIN
  7. XYZAL [Concomitant]
     Active Substance: LEVOCETIRIZINE DIHYDROCHLORIDE
  8. LOVAZA [Concomitant]
     Active Substance: OMEGA-3-ACID ETHYL ESTERS
  9. CRESTOR [Concomitant]
     Active Substance: ROSUVASTATIN CALCIUM
  10. ATENOLOL [Concomitant]
     Active Substance: ATENOLOL
  11. ASPIRIN [Concomitant]
     Active Substance: ASPIRIN
  12. MAGNESIUM [Concomitant]
     Active Substance: MAGNESIUM
  13. CALTRATE WITH VITAMIN D [Concomitant]
     Active Substance: CALCIUM CARBONATE\CHOLECALCIFEROL
  14. MELATONIN [Concomitant]
     Active Substance: MELATONIN
  15. LISINOPRIL [Concomitant]
     Active Substance: LISINOPRIL
  16. PREDNISONE [Concomitant]
     Active Substance: PREDNISONE
  17. MYRBETRIQ [Concomitant]
     Active Substance: MIRABEGRON
  18. TYLENOL [Concomitant]
     Active Substance: ACETAMINOPHEN

REACTIONS (4)
  - Meningitis chemical [Recovered/Resolved]
  - Blood sodium decreased [Recovered/Resolved]
  - Blood potassium increased [Recovered/Resolved]
  - Protein total increased [Recovered/Resolved]

NARRATIVE: CASE EVENT DATE: 20210522
